FAERS Safety Report 20746284 (Version 1)
Quarter: 2022Q2

REPORT INFORMATION
  Report Type: Spontaneous
  Country: US (occurrence: US)
  Receive Date: 20220425
  Receipt Date: 20220425
  Transmission Date: 20220721
  Serious: Yes (Other)
  Sender: FDA-Public Use
  Company Number: US-AMGEN-USASP2022066175

PATIENT
  Age: 75 Year
  Sex: Female

DRUGS (2)
  1. PROLIA [Suspect]
     Active Substance: DENOSUMAB
     Indication: Osteoporosis postmenopausal
     Dosage: 60 MILLIGRAM, Q6MO
     Route: 065
     Dates: start: 202109
  2. KLONOPIN [Concomitant]
     Active Substance: CLONAZEPAM
     Dosage: UNK UNK, UNK
     Route: 065

REACTIONS (12)
  - Antiphospholipid syndrome [Recovered/Resolved]
  - Drug ineffective [Unknown]
  - Pain in jaw [Unknown]
  - Hypoaesthesia oral [Unknown]
  - Muscle twitching [Unknown]
  - Ear pain [Recovering/Resolving]
  - Urinary meatitis [Unknown]
  - Dysphonia [Unknown]
  - Hypoaesthesia [Unknown]
  - Back pain [Unknown]
  - Arthralgia [Unknown]
  - Pain in extremity [Recovering/Resolving]

NARRATIVE: CASE EVENT DATE: 20220401
